FAERS Safety Report 4863902-8 (Version None)
Quarter: 2005Q4

REPORT INFORMATION
  Report Type: 
  Country: None (occurrence: None)
  Receive Date: 20051222
  Receipt Date: 20051214
  Transmission Date: 20060501
  Serious: Yes (Death)
  Sender: FDA-Public Use
  Company Number: FR-BRISTOL-MYERS SQUIBB COMPANY-13216965

PATIENT
  Age: 22 Year
  Sex: Female

DRUGS (1)
  1. ELISOR TABS 20 MG [Suspect]
     Route: 048
     Dates: end: 20031216

REACTIONS (2)
  - COMPLETED SUICIDE [None]
  - DEPRESSION [None]
